FAERS Safety Report 21564438 (Version 1)
Quarter: 2022Q4

REPORT INFORMATION
  Report Type: Spontaneous
  Country: TR (occurrence: TR)
  Receive Date: 20221108
  Receipt Date: 20221108
  Transmission Date: 20230112
  Serious: Yes (Other)
  Sender: FDA-Public Use
  Company Number: TR-AMNEAL PHARMACEUTICALS-2022-AMRX-03208

PATIENT
  Age: 12 Year
  Sex: Male

DRUGS (4)
  1. LEVETIRACETAM [Suspect]
     Active Substance: LEVETIRACETAM
     Indication: Epilepsy
     Route: 065
  2. LEVETIRACETAM [Suspect]
     Active Substance: LEVETIRACETAM
     Indication: Tourette^s disorder
  3. OXCARBAZEPINE [Suspect]
     Active Substance: OXCARBAZEPINE
     Indication: Epilepsy
     Route: 065
  4. OXCARBAZEPINE [Suspect]
     Active Substance: OXCARBAZEPINE
     Indication: Tourette^s disorder

REACTIONS (1)
  - Inappropriate antidiuretic hormone secretion [Recovering/Resolving]
